FAERS Safety Report 25830514 (Version 1)
Quarter: 2025Q3

REPORT INFORMATION
  Report Type: Spontaneous
  Country: EU (occurrence: EU)
  Receive Date: 20250922
  Receipt Date: 20250922
  Transmission Date: 20251020
  Serious: Yes (Death, Hospitalization, Other)
  Sender: CHEPLAPHARM
  Company Number: None

PATIENT
  Age: 80 Year
  Sex: Male
  Weight: 80 kg

DRUGS (44)
  1. PREDNISOLONE SODIUM METASULFOBENZOATE [Suspect]
     Active Substance: PREDNISOLONE SODIUM METAZOATE
     Indication: Myocarditis
     Dosage: DAILY DOSE: 80 MILLIGRAM
     Route: 048
     Dates: start: 20200828
  2. PREDNISOLONE SODIUM METASULFOBENZOATE [Suspect]
     Active Substance: PREDNISOLONE SODIUM METAZOATE
     Indication: Malignant melanoma
     Dosage: DAILY DOSE: 80 MILLIGRAM
     Route: 048
     Dates: start: 20200828
  3. PREDNISOLONE SODIUM METASULFOBENZOATE [Suspect]
     Active Substance: PREDNISOLONE SODIUM METAZOATE
     Indication: Myositis
     Dosage: DAILY DOSE: 80 MILLIGRAM
     Route: 048
     Dates: start: 20200828
  4. PREDNISOLONE SODIUM METASULFOBENZOATE [Suspect]
     Active Substance: PREDNISOLONE SODIUM METAZOATE
     Indication: Myocarditis
     Dosage: DAILY DOSE: 70 MILLIGRAM
     Route: 048
     Dates: start: 20200918
  5. PREDNISOLONE SODIUM METASULFOBENZOATE [Suspect]
     Active Substance: PREDNISOLONE SODIUM METAZOATE
     Indication: Malignant melanoma
     Dosage: DAILY DOSE: 70 MILLIGRAM
     Route: 048
     Dates: start: 20200918
  6. PREDNISOLONE SODIUM METASULFOBENZOATE [Suspect]
     Active Substance: PREDNISOLONE SODIUM METAZOATE
     Indication: Myositis
     Dosage: DAILY DOSE: 70 MILLIGRAM
     Route: 048
     Dates: start: 20200918
  7. PREDNISOLONE SODIUM METASULFOBENZOATE [Suspect]
     Active Substance: PREDNISOLONE SODIUM METAZOATE
     Indication: Myocarditis
     Dosage: DAILY DOSE: 60 MILLIGRAM
     Route: 048
     Dates: start: 20200923
  8. PREDNISOLONE SODIUM METASULFOBENZOATE [Suspect]
     Active Substance: PREDNISOLONE SODIUM METAZOATE
     Indication: Malignant melanoma
     Dosage: DAILY DOSE: 60 MILLIGRAM
     Route: 048
     Dates: start: 20200923
  9. PREDNISOLONE SODIUM METASULFOBENZOATE [Suspect]
     Active Substance: PREDNISOLONE SODIUM METAZOATE
     Indication: Myositis
     Dosage: DAILY DOSE: 60 MILLIGRAM
     Route: 048
     Dates: start: 20200923
  10. PREDNISOLONE SODIUM METASULFOBENZOATE [Suspect]
     Active Substance: PREDNISOLONE SODIUM METAZOATE
     Indication: Myocarditis
     Dosage: DAILY DOSE: 50 MILLIGRAM
     Route: 048
     Dates: start: 20200930
  11. PREDNISOLONE SODIUM METASULFOBENZOATE [Suspect]
     Active Substance: PREDNISOLONE SODIUM METAZOATE
     Indication: Malignant melanoma
     Dosage: DAILY DOSE: 50 MILLIGRAM
     Route: 048
     Dates: start: 20200930
  12. PREDNISOLONE SODIUM METASULFOBENZOATE [Suspect]
     Active Substance: PREDNISOLONE SODIUM METAZOATE
     Indication: Myositis
     Dosage: DAILY DOSE: 50 MILLIGRAM
     Route: 048
     Dates: start: 20200930
  13. PREDNISOLONE SODIUM METASULFOBENZOATE [Suspect]
     Active Substance: PREDNISOLONE SODIUM METAZOATE
     Indication: Myocarditis
     Dosage: DAILY DOSE: 45 MILLIGRAM
     Route: 048
     Dates: start: 20201013
  14. PREDNISOLONE SODIUM METASULFOBENZOATE [Suspect]
     Active Substance: PREDNISOLONE SODIUM METAZOATE
     Indication: Malignant melanoma
     Dosage: DAILY DOSE: 45 MILLIGRAM
     Route: 048
     Dates: start: 20201013
  15. PREDNISOLONE SODIUM METASULFOBENZOATE [Suspect]
     Active Substance: PREDNISOLONE SODIUM METAZOATE
     Indication: Myositis
     Dosage: DAILY DOSE: 45 MILLIGRAM
     Route: 048
     Dates: start: 20201013
  16. PREDNISOLONE SODIUM METASULFOBENZOATE [Suspect]
     Active Substance: PREDNISOLONE SODIUM METAZOATE
     Indication: Myocarditis
     Route: 048
     Dates: start: 20201105
  17. PREDNISOLONE SODIUM METASULFOBENZOATE [Suspect]
     Active Substance: PREDNISOLONE SODIUM METAZOATE
     Indication: Malignant melanoma
     Route: 048
     Dates: start: 20201105
  18. PREDNISOLONE SODIUM METASULFOBENZOATE [Suspect]
     Active Substance: PREDNISOLONE SODIUM METAZOATE
     Indication: Myositis
     Route: 048
     Dates: start: 20201105
  19. PREDNISOLONE SODIUM METASULFOBENZOATE [Suspect]
     Active Substance: PREDNISOLONE SODIUM METAZOATE
     Indication: Myocarditis
     Route: 048
  20. PREDNISOLONE SODIUM METASULFOBENZOATE [Suspect]
     Active Substance: PREDNISOLONE SODIUM METAZOATE
     Indication: Malignant melanoma
     Route: 048
  21. PREDNISOLONE SODIUM METASULFOBENZOATE [Suspect]
     Active Substance: PREDNISOLONE SODIUM METAZOATE
     Indication: Myositis
     Route: 048
  22. OLANZAPINE [Suspect]
     Active Substance: OLANZAPINE
     Indication: Mania
     Dosage: GRADUALLY INCREASING DOSE UP TO 20 MG/DAY(IN THE EVENING)?DAILY DOSE: 20 MILLIGRAM
  23. SOLU-MEDROL [Suspect]
     Active Substance: METHYLPREDNISOLONE SODIUM SUCCINATE
     Indication: Malignant melanoma
     Dosage: DAILY DOSE: 1 GRAM
     Route: 042
     Dates: start: 20200825, end: 20200827
  24. SOLU-MEDROL [Suspect]
     Active Substance: METHYLPREDNISOLONE SODIUM SUCCINATE
     Indication: Myocarditis
     Dosage: DAILY DOSE: 1 GRAM
     Route: 042
     Dates: start: 20200825, end: 20200827
  25. ABATACEPT [Suspect]
     Active Substance: ABATACEPT
     Dates: start: 20200910
  26. ABATACEPT [Suspect]
     Active Substance: ABATACEPT
     Dates: start: 20200916
  27. ABATACEPT [Suspect]
     Active Substance: ABATACEPT
     Dates: start: 20200923
  28. KARDEGIC [Suspect]
     Active Substance: ASPIRIN DL-LYSINE
     Dates: end: 20201116
  29. TIAPRIDE HYDROCHLORIDE [Suspect]
     Active Substance: TIAPRIDE HYDROCHLORIDE
     Indication: Mania
  30. TIAPRIDE HYDROCHLORIDE [Suspect]
     Active Substance: TIAPRIDE HYDROCHLORIDE
     Indication: Mania
  31. DEPAKOTE [Suspect]
     Active Substance: DIVALPROEX SODIUM
     Dosage: DAILY DOSE: 250 MILLIGRAM
     Dates: start: 20201127, end: 20201201
  32. DEPAKOTE [Suspect]
     Active Substance: DIVALPROEX SODIUM
     Dosage: THEN 500 MG/DAY?DAILY DOSE: 500 MILLIGRAM
     Dates: start: 20201202
  33. INNOHEP [Suspect]
     Active Substance: TINZAPARIN SODIUM
     Indication: Anticoagulant therapy
  34. PREDNISONE [Concomitant]
     Active Substance: PREDNISONE
     Dosage: DAILY DOSE: 20 MILLIGRAM
  35. FUROSEMIDE [Concomitant]
     Active Substance: FUROSEMIDE
     Dosage: IN THE MORNING?DAILY DOSE: 40 MILLIGRAM
  36. IRBESARTAN [Concomitant]
     Active Substance: IRBESARTAN
     Dosage: IN THE MORNING?DAILY DOSE: 75 MILLIGRAM
  37. HYDROCHLOROTHIAZIDE [Concomitant]
     Active Substance: HYDROCHLOROTHIAZIDE
  38. ATORVASTATIN [Concomitant]
     Active Substance: ATORVASTATIN
     Dosage: IN THE EVENING?DAILY DOSE: 10 MILLIGRAM
  39. BISOPROLOL [Concomitant]
     Active Substance: BISOPROLOL
  40. Cacit [Concomitant]
     Dosage: IN THE MORNING, AWAY FROM BREAKFAST?DAILY DOSE: 1 DOSAGE FORM
  41. CHOLECALCIFEROL [Concomitant]
     Active Substance: CHOLECALCIFEROL
     Dosage: 1 VIAL PER MONTH
  42. LANSOPRAZOLE [Concomitant]
     Active Substance: LANSOPRAZOLE
     Dosage: IN THE EVENING?DAILY DOSE: 15 MILLIGRAM
  43. DOLIPRANE [Concomitant]
     Active Substance: ACETAMINOPHEN
  44. NIVOLUMAB [Concomitant]
     Active Substance: NIVOLUMAB
     Dates: start: 20200727

REACTIONS (8)
  - Mania [Fatal]
  - Slipping rib syndrome [Fatal]
  - Sarcopenia [Not Recovered/Not Resolved]
  - Atypical parkinsonism [Unknown]
  - Leukoencephalopathy [Unknown]
  - Fall [Unknown]
  - Hypermetabolism [Unknown]
  - Venous thrombosis [Unknown]

NARRATIVE: CASE EVENT DATE: 20200101
